FAERS Safety Report 4902370-4 (Version None)
Quarter: 2006Q1

REPORT INFORMATION
  Report Type: 
  Country: None (occurrence: None)
  Receive Date: 20060202
  Receipt Date: 20060117
  Transmission Date: 20060701
  Serious: Yes (Hospitalization)
  Sender: FDA-Public Use
  Company Number: 220990

PATIENT
  Age: 59 Year
  Sex: Female
  Weight: 67 kg

DRUGS (3)
  1. HERCEPTIN [Suspect]
     Indication: BREAST CANCER
     Dosage: 400 MG, Q3W, INTRAVENOUS
     Route: 042
     Dates: start: 20051128
  2. EPIRUBICIN [Suspect]
     Indication: BREAST CANCER
     Dosage: 156 MG, Q3W, INTRAVENOUS
     Route: 042
     Dates: start: 20051128
  3. CYCLOPHOSPHAMIDE [Suspect]
     Indication: BREAST CANCER
     Dosage: 1038 MG, Q3W, INTRAVENOUS
     Route: 042
     Dates: start: 20051128

REACTIONS (2)
  - CHEST PAIN [None]
  - COUGH [None]
